FAERS Safety Report 6500065-7 (Version None)
Quarter: 2009Q4

REPORT INFORMATION
  Report Type: 
  Country: None (occurrence: None)
  Receive Date: 20091216
  Receipt Date: 20091207
  Transmission Date: 20100525
  Serious: Yes (Other)
  Sender: FDA-Public Use
  Company Number: DE-JNJFOC-20091202111

PATIENT
  Sex: Female

DRUGS (7)
  1. TAVANIC [Suspect]
     Indication: DRUG USE FOR UNKNOWN INDICATION
     Route: 065
  2. OFLOXACIN [Suspect]
     Indication: DRUG USE FOR UNKNOWN INDICATION
     Route: 065
  3. CEFPODOXIME PROXETIL [Suspect]
     Indication: DRUG USE FOR UNKNOWN INDICATION
     Route: 065
  4. CIPROFLAXACIN [Suspect]
     Indication: DRUG USE FOR UNKNOWN INDICATION
     Route: 065
  5. AVELOX [Suspect]
     Indication: DRUG USE FOR UNKNOWN INDICATION
     Route: 065
  6. URO-TARIVID [Suspect]
     Indication: DRUG USE FOR UNKNOWN INDICATION
     Route: 065
  7. UNSPECIFIED GYRASE INHIBITOR [Suspect]
     Indication: DRUG USE FOR UNKNOWN INDICATION
     Route: 065

REACTIONS (6)
  - ASTHENIA [None]
  - DIZZINESS [None]
  - ERYTHEMA NODOSUM [None]
  - HEADACHE [None]
  - MUSCLE SPASMS [None]
  - PAIN IN EXTREMITY [None]
